FAERS Safety Report 21413881 (Version 1)
Quarter: 2022Q4

REPORT INFORMATION
  Report Type: Spontaneous
  Country: NL (occurrence: NL)
  Receive Date: 20221006
  Receipt Date: 20221006
  Transmission Date: 20230113
  Serious: Yes (Other)
  Sender: FDA-Public Use
  Company Number: NL-SUN PHARMACEUTICAL INDUSTRIES LTD-2022RR-356390

PATIENT
  Sex: Female
  Weight: 60 kg

DRUGS (1)
  1. ISOTRETINOIN [Suspect]
     Active Substance: ISOTRETINOIN
     Indication: Acne
     Dosage: 30 MILLIGRAM, DAILY, 1X 20 MG AND 1X 10MG
     Route: 065
     Dates: start: 20220819

REACTIONS (6)
  - Suicidal ideation [Recovering/Resolving]
  - Self-injurious ideation [Recovering/Resolving]
  - Stress [Recovering/Resolving]
  - Depressed mood [Recovering/Resolving]
  - Feeling abnormal [Recovering/Resolving]
  - Mood swings [Recovering/Resolving]
